FAERS Safety Report 14641206 (Version 2)
Quarter: 2025Q2

REPORT INFORMATION
  Report Type: Spontaneous
  Country: SE (occurrence: SE)
  Receive Date: 20180315
  Receipt Date: 20250429
  Transmission Date: 20250716
  Serious: Yes (Other)
  Sender: AUROBINDO
  Company Number: SE-MYLANLABS-2018M1015613

PATIENT
  Age: 86 Year
  Sex: Male

DRUGS (6)
  1. AMOXICILLIN\CLAVULANIC ACID [Interacting]
     Active Substance: AMOXICILLIN\CLAVULANIC ACID
     Indication: Respiratory tract infection bacterial
     Route: 048
  2. ENALAPRIL [Suspect]
     Active Substance: ENALAPRIL
     Indication: Cardiomyopathy
     Dosage: 5 MILLIGRAM, ONCE A DAY, (LONG TERM)
     Route: 048
  3. ASPIRIN [Interacting]
     Active Substance: ASPIRIN
     Indication: Cardiomyopathy
     Dosage: 300 MILLIGRAM, ONCE A DAY, (LONG TERM)
     Route: 048
  4. CIPROFLOXACIN [Interacting]
     Active Substance: CIPROFLOXACIN
     Indication: Respiratory tract infection bacterial
     Dosage: 1000 MILLIGRAM, ONCE A DAY
     Route: 048
  5. ACETAMINOPHEN [Concomitant]
     Active Substance: ACETAMINOPHEN
     Indication: Product used for unknown indication
     Route: 065
  6. FUROSEMIDE [Concomitant]
     Active Substance: FUROSEMIDE
     Indication: Product used for unknown indication
     Route: 065

REACTIONS (2)
  - Acute kidney injury [Unknown]
  - Drug interaction [Unknown]
